FAERS Safety Report 21285700 (Version 3)
Quarter: 2023Q2

REPORT INFORMATION
  Report Type: Report from Study
  Country: CA (occurrence: CA)
  Receive Date: 20220902
  Receipt Date: 20230616
  Transmission Date: 20230722
  Serious: Yes (Other)
  Sender: FDA-Public Use
  Company Number: CA-NOVARTISPH-NVSC2022CA167974

PATIENT
  Age: 30 Year
  Sex: Male

DRUGS (3)
  1. RITUXIMAB [Suspect]
     Active Substance: RITUXIMAB
     Indication: Immune thrombocytopenia
     Dosage: 375 MG/M2 (4 DOSES IN FEB/MAR 2020)
     Route: 065
     Dates: start: 202002, end: 2020
  2. RITUXIMAB [Suspect]
     Active Substance: RITUXIMAB
     Dosage: UNK
     Route: 065
     Dates: start: 202204
  3. DEXAMETHASONE [Suspect]
     Active Substance: DEXAMETHASONE
     Indication: Immune thrombocytopenia
     Dosage: UNK
     Route: 065

REACTIONS (6)
  - Immune thrombocytopenia [Unknown]
  - Disease recurrence [Unknown]
  - Anxiety [Unknown]
  - Depression [Unknown]
  - Product use in unapproved indication [Unknown]
  - Therapy non-responder [Unknown]

NARRATIVE: CASE EVENT DATE: 20220301
